FAERS Safety Report 16622208 (Version 2)
Quarter: 2019Q3

REPORT INFORMATION
  Report Type: Spontaneous
  Country: FR (occurrence: FR)
  Receive Date: 20190723
  Receipt Date: 20190918
  Transmission Date: 20191004
  Serious: Yes (Hospitalization)
  Sender: FDA-Public Use
  Company Number: FR-TEVA-2019-FR-1081049

PATIENT
  Age: 66 Year
  Sex: Female

DRUGS (20)
  1. LOVENOX [Concomitant]
     Active Substance: ENOXAPARIN SODIUM
  2. SYMBICORT [Concomitant]
     Active Substance: BUDESONIDE\FORMOTEROL FUMARATE DIHYDRATE
  3. LAROXYL [Concomitant]
     Active Substance: AMITRIPTYLINE HYDROCHLORIDE
     Route: 048
  4. LANTUS [Concomitant]
     Active Substance: INSULIN GLARGINE
  5. OXYNORM [Concomitant]
     Active Substance: OXYCODONE HYDROCHLORIDE
  6. DEPAKINE [Concomitant]
     Active Substance: VALPROATE SODIUM
     Indication: EPILEPSY
     Route: 048
     Dates: start: 20190406
  7. OXYCODONE [Concomitant]
     Active Substance: OXYCODONE
  8. ECONAZOLE. [Concomitant]
     Active Substance: ECONAZOLE NITRATE
     Route: 061
  9. PREGABALINE [Suspect]
     Active Substance: PREGABALIN
     Indication: EPILEPSY
     Route: 048
     Dates: start: 20190406, end: 20190702
  10. RIFAMPICINE [Concomitant]
     Active Substance: RIFAMPIN
  11. NOVORAPID [Concomitant]
     Active Substance: INSULIN ASPART
  12. LEVETIRACETAM. [Concomitant]
     Active Substance: LEVETIRACETAM
     Indication: EPILEPSY
     Route: 048
     Dates: start: 20190406
  13. NEFOPAM (CHLORHYDRATE DE) [Concomitant]
     Active Substance: NEFOPAM HYDROCHLORIDE
  14. TEICOPLANINE [Concomitant]
     Active Substance: TEICOPLANIN
  15. ZYMAD [Concomitant]
     Active Substance: CHOLECALCIFEROL
     Route: 048
  16. PANTOPRAZOLE [Suspect]
     Active Substance: PANTOPRAZOLE
     Indication: PRODUCT USED FOR UNKNOWN INDICATION
     Route: 048
     Dates: start: 20190406, end: 20190701
  17. BRICANYL [Concomitant]
     Active Substance: TERBUTALINE SULFATE
  18. VENTOLINE [Concomitant]
     Active Substance: ALBUTEROL
  19. ATORVASTATINE [Concomitant]
     Active Substance: ATORVASTATIN
     Route: 048
  20. PARACETAMOL [Concomitant]
     Active Substance: ACETAMINOPHEN

REACTIONS (2)
  - Thrombocytopenia [Recovered/Resolved]
  - Folate deficiency [Recovered/Resolved]

NARRATIVE: CASE EVENT DATE: 201906
